FAERS Safety Report 12477215 (Version 1)
Quarter: 2016Q2

REPORT INFORMATION
  Report Type: Spontaneous
  Country: FR (occurrence: FR)
  Receive Date: 20160617
  Receipt Date: 20160617
  Transmission Date: 20160815
  Serious: Yes (Hospitalization)
  Sender: FDA-Public Use
  Company Number: FR-ASTRAZENECA-2016SE64901

PATIENT
  Age: 86 Year
  Sex: Male

DRUGS (7)
  1. INEXIUM [Suspect]
     Active Substance: ESOMEPRAZOLE
     Indication: DYSPEPSIA
     Route: 048
     Dates: end: 20160511
  2. CIBADREX [Concomitant]
     Active Substance: BENAZEPRIL HYDROCHLORIDE
  3. METEOXANE [Concomitant]
     Active Substance: AMOBARBITAL\BELLADONNA LEAF\DIMETHICONE\ERGOTAMINE TARTRATE
  4. NASONEX [Concomitant]
     Active Substance: MOMETASONE FUROATE
  5. EFFERALGAN [Concomitant]
     Active Substance: ACETAMINOPHEN
  6. INNOVAIR [Suspect]
     Active Substance: BECLOMETHASONE DIPROPIONATE\FORMOTEROL
     Indication: ASTHMA
     Route: 055
  7. HYPERIUM [Suspect]
     Active Substance: RILMENIDINE PHOSPHATE
     Indication: HYPERTENSION
     Route: 048
     Dates: start: 20160209

REACTIONS (5)
  - Lymphadenopathy [Unknown]
  - Weight decreased [Unknown]
  - Dermatitis exfoliative [Recovering/Resolving]
  - Sleep disorder due to general medical condition, insomnia type [Unknown]
  - Asthenia [Unknown]
